FAERS Safety Report 8062926-X (Version None)
Quarter: 2012Q1

REPORT INFORMATION
  Report Type: 
  Country: None (occurrence: None)
  Receive Date: 20120123
  Receipt Date: 20120123
  Transmission Date: 20120608
  Serious: Yes (Hospitalization)
  Sender: FDA-Public Use
  Company Number: None

PATIENT
  Age: 51 Year
  Sex: Female
  Weight: 145.6 kg

DRUGS (1)
  1. EXCEDRIN EXTRA STRENGTH TABLETS [Suspect]
     Indication: OSTEOARTHRITIS
     Dosage: 2 CAPLETS
     Route: 048
     Dates: start: 20120108, end: 20120115

REACTIONS (2)
  - ASTHMA [None]
  - HYPERSENSITIVITY [None]
